FAERS Safety Report 12381532 (Version 3)
Quarter: 2016Q3

REPORT INFORMATION
  Report Type: Spontaneous
  Country: US (occurrence: US)
  Receive Date: 20160518
  Receipt Date: 20160726
  Transmission Date: 20161109
  Serious: Yes (Hospitalization, Other)
  Sender: FDA-Public Use
  Company Number: US-BAYER-2016-094137

PATIENT
  Age: 29 Year
  Sex: Female
  Weight: 63.49 kg

DRUGS (1)
  1. MIRENA [Suspect]
     Active Substance: LEVONORGESTREL
     Indication: CONTRACEPTION
     Dosage: 20 MCG/24HR, CONT
     Route: 015
     Dates: start: 20110909, end: 20140924

REACTIONS (11)
  - High risk pregnancy [None]
  - Activities of daily living impaired [Not Recovered/Not Resolved]
  - Uterine perforation [Not Recovered/Not Resolved]
  - Headache [None]
  - Pregnancy with contraceptive device [None]
  - Abdominal pain upper [Not Recovered/Not Resolved]
  - Abortion late [None]
  - Back pain [Not Recovered/Not Resolved]
  - Drug ineffective [None]
  - Device issue [None]
  - Device difficult to use [None]

NARRATIVE: CASE EVENT DATE: 20130125
